FAERS Safety Report 7673414-4 (Version None)
Quarter: 2011Q3

REPORT INFORMATION
  Report Type: 
  Country: None (occurrence: None)
  Receive Date: 20110810
  Receipt Date: 20110808
  Transmission Date: 20111222
  Serious: No
  Sender: FDA-Public Use
  Company Number: US-PFIZER INC-2011182228

PATIENT
  Sex: Male

DRUGS (3)
  1. CELEBREX [Suspect]
     Indication: ARTHRALGIA
     Dosage: 200 MG, UNK
  2. LISINOPRIL [Interacting]
     Dosage: 20 MG, DAILY
  3. CELEBREX [Interacting]
     Indication: ARTHRITIS

REACTIONS (2)
  - DIZZINESS [None]
  - DRUG INTERACTION [None]
